FAERS Safety Report 6820551-X (Version None)
Quarter: 2010Q3

REPORT INFORMATION
  Report Type: 
  Country: None (occurrence: None)
  Receive Date: 20100707
  Receipt Date: 20100702
  Transmission Date: 20110219
  Serious: Yes (Hospitalization)
  Sender: FDA-Public Use
  Company Number: US-GILEAD-2010-0030120

PATIENT
  Sex: Female

DRUGS (14)
  1. LETAIRIS [Suspect]
     Indication: PULMONARY ARTERIAL HYPERTENSION
     Route: 048
     Dates: start: 20100217
  2. WARFARIN [Concomitant]
  3. ISOSORBIDE [Concomitant]
  4. BUDESONIDE/FORMOTEROL [Concomitant]
  5. ZAFIRLUKAST [Concomitant]
  6. CLONAZEPAM [Concomitant]
  7. INSULIN DETEMIR [Concomitant]
  8. PREDNISONE [Concomitant]
  9. CITALOPRAM HYDROBROMIDE [Concomitant]
  10. DOCUSATE [Concomitant]
  11. ESOMEPRAZOLE MAGNESIUM [Concomitant]
  12. NITROGLYCERIN [Concomitant]
  13. SPIRONOLACTONE [Concomitant]
  14. POTASSIUM CHLORIDE [Concomitant]

REACTIONS (3)
  - DYSPNOEA [None]
  - GENERALISED OEDEMA [None]
  - LIVER FUNCTION TEST ABNORMAL [None]
